FAERS Safety Report 9136642 (Version 1)
Quarter: 2013Q1

REPORT INFORMATION
  Report Type: Spontaneous
  Country: US (occurrence: US)
  Receive Date: 20130304
  Receipt Date: 20130304
  Transmission Date: 20140127
  Serious: No
  Sender: FDA-Public Use
  Company Number: US-ABBOTT-12P-163-0931712-00

PATIENT
  Age: 61 Year
  Sex: Male
  Weight: 90.8 kg

DRUGS (8)
  1. ANDROGEL 1% [Suspect]
     Indication: BLOOD TESTOSTERONE DECREASED
     Dosage: UNKNOWN DOSES
     Route: 061
     Dates: end: 201112
  2. ANDROGEL 1.62% [Suspect]
     Indication: SECONDARY HYPOGONADISM
     Dosage: 2 PUMPS DAILY
     Route: 061
     Dates: start: 201112, end: 201201
  3. ANDROGEL 1.62% [Suspect]
     Indication: BLOOD TESTOSTERONE DECREASED
     Dosage: 4 PUMPS DAILY
     Route: 061
     Dates: start: 201201
  4. PROZAC [Concomitant]
     Indication: PRODUCT USED FOR UNKNOWN INDICATION
  5. TRICOR [Concomitant]
     Indication: BLOOD TRIGLYCERIDES INCREASED
     Route: 048
  6. VITAMIN D [Concomitant]
     Indication: VITAMIN SUPPLEMENTATION
  7. CALCIUM CITRATE [Concomitant]
     Indication: MINERAL SUPPLEMENTATION
  8. OMEPRAZOLE [Concomitant]
     Indication: PRODUCT USED FOR UNKNOWN INDICATION

REACTIONS (3)
  - Drug administered at inappropriate site [Not Recovered/Not Resolved]
  - Blood testosterone decreased [Not Recovered/Not Resolved]
  - Secondary hypogonadism [Unknown]
